FAERS Safety Report 8595043-0 (Version None)
Quarter: 2012Q3

REPORT INFORMATION
  Report Type: 
  Country: None (occurrence: None)
  Receive Date: 20120815
  Receipt Date: 20120807
  Transmission Date: 20120928
  Serious: Yes (Other)
  Sender: FDA-Public Use
  Company Number: US-CELGENEUS-163-21880-12071341

PATIENT
  Sex: Male
  Weight: 67.192 kg

DRUGS (4)
  1. REVLIMID [Suspect]
     Indication: MULTIPLE MYELOMA
     Dosage: 25 MILLIGRAM
     Route: 048
     Dates: start: 20111222
  2. REVLIMID [Suspect]
     Dosage: 25 MILLIGRAM
     Route: 048
     Dates: start: 20120608, end: 20120628
  3. VELCADE [Concomitant]
     Route: 065
  4. REVLIMID [Suspect]
     Dosage: 10 MILLIGRAM
     Route: 048
     Dates: start: 20120713, end: 20120726

REACTIONS (9)
  - DIARRHOEA [None]
  - DYSGEUSIA [None]
  - INSOMNIA [None]
  - PURPURA [None]
  - ABDOMINAL DISCOMFORT [None]
  - MUSCULOSKELETAL PAIN [None]
  - CARPAL TUNNEL SYNDROME [None]
  - FATIGUE [None]
  - MALAISE [None]
